FAERS Safety Report 9822129 (Version 2)
Quarter: 2014Q1

REPORT INFORMATION
  Report Type: Spontaneous
  Country: US (occurrence: US)
  Receive Date: 20140116
  Receipt Date: 20140129
  Transmission Date: 20141002
  Serious: No
  Sender: FDA-Public Use
  Company Number: US-GLAXOSMITHKLINE-A1056796A

PATIENT
  Sex: Male

DRUGS (1)
  1. COREG CR [Suspect]
     Indication: CARDIOVASCULAR DISORDER
     Dosage: 20MCG UNKNOWN
     Route: 065

REACTIONS (1)
  - No adverse event [Unknown]
